FAERS Safety Report 21700988 (Version 2)
Quarter: 2022Q4

REPORT INFORMATION
  Report Type: Report from Study
  Country: CA (occurrence: CA)
  Receive Date: 20221208
  Receipt Date: 20221223
  Transmission Date: 20230112
  Serious: Yes (Other)
  Sender: FDA-Public Use
  Company Number: CA-OTSUKA-2021_044634

PATIENT
  Sex: Male

DRUGS (2)
  1. CEDAZURIDINE\DECITABINE [Suspect]
     Active Substance: CEDAZURIDINE\DECITABINE
     Indication: Myelodysplastic syndrome
     Dosage: 1 DF, QD (1-5 DAYS) EVERY 28 DAY CYCLE
     Route: 065
     Dates: start: 20211117
  2. CEDAZURIDINE\DECITABINE [Suspect]
     Active Substance: CEDAZURIDINE\DECITABINE
     Dosage: 1 DF, QD (ON 1-4 DAYS) EVERY 28 DAY CYCLE
     Route: 065

REACTIONS (8)
  - Pericardial effusion [Unknown]
  - Device malfunction [Unknown]
  - Nasopharyngitis [Unknown]
  - COVID-19 [Unknown]
  - Fatigue [Unknown]
  - Dyspnoea [Unknown]
  - Diarrhoea [Recovered/Resolved]
  - Product use issue [Unknown]
